FAERS Safety Report 7427453-9 (Version None)
Quarter: 2011Q2

REPORT INFORMATION
  Report Type: 
  Country: None (occurrence: None)
  Receive Date: 20110420
  Receipt Date: 20110323
  Transmission Date: 20111010
  Serious: No
  Sender: FDA-Public Use
  Company Number: US-B.I. PHARMACEUTICALS,INC./RIDGEFIELD-2011-BP-08963BP

PATIENT
  Sex: Male

DRUGS (11)
  1. AMBIEN [Concomitant]
     Indication: INSOMNIA
     Dosage: 10 MG
  2. OSCAL [Concomitant]
     Indication: SUPPLEMENTATION THERAPY
     Dosage: 500 MG
  3. CENTRUM SILVER [Concomitant]
     Indication: SUPPLEMENTATION THERAPY
  4. LIPITOR [Concomitant]
     Indication: BLOOD CHOLESTEROL INCREASED
     Dosage: 20 MG
  5. OSTEO BIFLEX GLUCOSAMINE [Concomitant]
  6. CATAPRES-TTS-1 [Suspect]
     Indication: HYPERTENSION
     Dosage: 0.1 MG
     Route: 061
  7. PRADAXA [Suspect]
     Indication: ATRIAL FIBRILLATION
     Dosage: 150 MG
     Dates: end: 20110318
  8. FISH OIL [Concomitant]
     Indication: SUPPLEMENTATION THERAPY
  9. LEXAPRO [Concomitant]
     Indication: ANXIETY
     Dosage: 25 MG
  10. METOPROLOL [Concomitant]
     Indication: HYPERTENSION
     Dosage: 25 MG
  11. VITAMIN D [Concomitant]
     Indication: SUPPLEMENTATION THERAPY
     Dosage: 1000 U

REACTIONS (4)
  - ATRIAL FIBRILLATION [None]
  - FLATULENCE [None]
  - RASH MACULAR [None]
  - PRURITUS [None]
